FAERS Safety Report 4897571-8 (Version None)
Quarter: 2006Q1

REPORT INFORMATION
  Report Type: 
  Country: None (occurrence: None)
  Receive Date: 20060130
  Receipt Date: 20060130
  Transmission Date: 20060701
  Serious: Yes (Other)
  Sender: FDA-Public Use
  Company Number: None

PATIENT
  Sex: Female
  Weight: 75.2971 kg

DRUGS (2)
  1. CLINDAMYCIN HCL [Suspect]
     Dosage: 1 CAP 4 TIMES A DAY FOR 7 DAYS
  2. ROXYCYCLINE HYCLATE 100 MG (WEST) [Suspect]
     Dosage: 1 CAP 2 TIMES A DAY FOR 7 DAYS

REACTIONS (5)
  - DIARRHOEA [None]
  - PRURITUS [None]
  - RETCHING [None]
  - URTICARIA [None]
  - VOMITING [None]
